FAERS Safety Report 5408786-4 (Version None)
Quarter: 2007Q3

REPORT INFORMATION
  Report Type: 
  Country: None (occurrence: None)
  Receive Date: 20070808
  Receipt Date: 20070728
  Transmission Date: 20080115
  Serious: Yes (Other)
  Sender: FDA-Public Use
  Company Number: US-ELI_LILLY_AND_COMPANY-US200701002466

PATIENT
  Age: 40 Year
  Sex: Female

DRUGS (1)
  1. CYMBALTA [Suspect]
     Indication: DEPRESSION
     Dosage: 30 MG, DAILY (1/D)
     Dates: start: 20061101, end: 20061201

REACTIONS (16)
  - ACTIVITIES OF DAILY LIVING IMPAIRED [None]
  - BALANCE DISORDER [None]
  - BRAIN STEM SYNDROME [None]
  - CEREBROVASCULAR ACCIDENT [None]
  - CONVULSION [None]
  - DIARRHOEA [None]
  - DYSPHEMIA [None]
  - HEADACHE [None]
  - HYDROCEPHALUS [None]
  - HYPOAESTHESIA FACIAL [None]
  - INSOMNIA [None]
  - NAUSEA [None]
  - PARAESTHESIA [None]
  - SINUSITIS [None]
  - SPINAL CORD DISORDER [None]
  - VOMITING [None]
